FAERS Safety Report 20144657 (Version 1)
Quarter: 2021Q4

REPORT INFORMATION
  Report Type: Spontaneous
  Country: GB (occurrence: GB)
  Receive Date: 20211203
  Receipt Date: 20211203
  Transmission Date: 20220303
  Serious: Yes (Life-Threatening, Hospitalization, Disabling, Other)
  Sender: FDA-Public Use
  Company Number: None

PATIENT
  Age: 26 Year
  Sex: Male
  Weight: 70 kg

DRUGS (8)
  1. PROTOPIC [Suspect]
     Active Substance: TACROLIMUS
     Indication: Dermatitis atopic
     Dosage: USE AS AND WHEN NEEDED. DOCTOR SAID PATIENT COULD USE AS MUCH AS WANT, WHENEVER PATIENT WANT. USED O
     Route: 061
     Dates: start: 201805, end: 202103
  2. PROTOPIC [Suspect]
     Active Substance: TACROLIMUS
     Indication: Dermatitis atopic
     Dosage: USE AS AND WHEN NEEDED. DOCTOR SAID PATIENT COULD USE AS MUCH AS WANT, WHENEVER PATIENT WANT. USED O
     Route: 061
     Dates: start: 201805, end: 202103
  3. CLOBETASONE [Suspect]
     Active Substance: CLOBETASONE
     Indication: Dermatitis atopic
     Dosage: TWICE DAILY AS AND WHEN NEEDED. ON AND OFF. NEVER LONGER THAN 2 WEEKS.
     Route: 061
     Dates: start: 201710, end: 201807
  4. BETAMETHASONE [Suspect]
     Active Substance: BETAMETHASONE
     Indication: Dermatitis atopic
     Dosage: TWICE DAILY AS AND WHEN REQUIRED. ON AND OFF. 3 YEAR BREAK BETWEEN 2017 AND 2020.
     Route: 061
     Dates: start: 201609, end: 202009
  5. EUMOVATE [Suspect]
     Active Substance: CLOBETASONE BUTYRATE
     Indication: Dermatitis atopic
     Dosage: TWICE DAILY AS AND WHEN NEEDED. ON AND OFF. NEVER LONGER THAN 2 WEEKS.
     Route: 061
     Dates: start: 201701, end: 201710
  6. PREDNISOLONE [Suspect]
     Active Substance: PREDNISOLONE
     Indication: Dermatitis atopic
     Dosage: 15-40MG DAILY. NEVER FOR LONGER THAN A WEEK. ON AND OFF. LONG BREAK FROM 2018 TO 2021.
     Route: 048
     Dates: start: 201801, end: 202103
  7. MOMETASONE [Suspect]
     Active Substance: MOMETASONE
     Indication: Dermatitis atopic
     Dosage: TWICE DAILY AS AND WHEN NEEDED. ON AND OFF. NEVER LONGER THAN 2 WEEKS.
     Route: 061
     Dates: start: 201910, end: 202101
  8. BETNOVATE [Suspect]
     Active Substance: BETAMETHASONE
     Indication: Dermatitis atopic
     Dosage: TWICE DAILY AS AND WHEN REQUIRED. ON AND OFF.
     Route: 061
     Dates: start: 201509, end: 201604

REACTIONS (10)
  - Dermatitis [Not Recovered/Not Resolved]
  - Skin exfoliation [Not Recovered/Not Resolved]
  - Vasculitis [Not Recovered/Not Resolved]
  - Lymphadenitis [Not Recovered/Not Resolved]
  - Skin weeping [Not Recovered/Not Resolved]
  - Inappropriate schedule of product administration [Unknown]
  - Constipation [Unknown]
  - Erythema [Not Recovered/Not Resolved]
  - Pruritus [Not Recovered/Not Resolved]
  - Insomnia [Not Recovered/Not Resolved]

NARRATIVE: CASE EVENT DATE: 20210328
